FAERS Safety Report 8911853 (Version 2)
Quarter: 2012Q4

REPORT INFORMATION
  Report Type: Report from Study
  Country: CA (occurrence: CA)
  Receive Date: 20121116
  Receipt Date: 20121123
  Transmission Date: 20130627
  Serious: Yes (Hospitalization)
  Sender: FDA-Public Use
  Company Number: CA-JNJFOC-20121102626

PATIENT
  Age: 87 Year
  Sex: Female
  Weight: 39.5 kg

DRUGS (1)
  1. REMICADE [Suspect]
     Indication: PSORIATIC ARTHROPATHY
     Route: 042

REACTIONS (3)
  - Balance disorder [Unknown]
  - Hypokinesia [Unknown]
  - Fatigue [Unknown]
